FAERS Safety Report 5037584-9 (Version None)
Quarter: 2006Q2

REPORT INFORMATION
  Report Type: 
  Country: None (occurrence: None)
  Receive Date: 20060628
  Receipt Date: 20060626
  Transmission Date: 20061013
  Serious: Yes (Hospitalization)
  Sender: FDA-Public Use
  Company Number: DE-GLAXOSMITHKLINE-D0050130A

PATIENT
  Age: 53 Year
  Sex: Female
  Weight: 68.2 kg

DRUGS (4)
  1. QUILONUM RETARD [Suspect]
     Route: 048
     Dates: start: 20060113
  2. RISPERDAL [Suspect]
     Route: 048
     Dates: start: 20060110, end: 20060212
  3. DIAZEPAM [Concomitant]
     Route: 048
     Dates: start: 20060117, end: 20060213
  4. PANTOZOL [Concomitant]
     Dosage: 20MG PER DAY
     Route: 048

REACTIONS (7)
  - CEREBELLAR SYNDROME [None]
  - CHILLS [None]
  - COGWHEEL RIGIDITY [None]
  - GAIT DISTURBANCE [None]
  - MOTOR DYSFUNCTION [None]
  - PARKINSONISM [None]
  - THINKING ABNORMAL [None]
